FAERS Safety Report 15232459 (Version 1)
Quarter: 2018Q3

REPORT INFORMATION
  Report Type: Spontaneous
  Country: US (occurrence: US)
  Receive Date: 20180802
  Receipt Date: 20180802
  Transmission Date: 20181010
  Serious: No
  Sender: FDA-Public Use
  Company Number: US-IMPAX LABORATORIES, INC-2017-IPXL-03877

PATIENT
  Age: 60 Year
  Sex: Male
  Weight: 118 kg

DRUGS (1)
  1. OXYMORPHONE HYDROCHLORIDE ER [Suspect]
     Active Substance: OXYMORPHONE HYDROCHLORIDE
     Indication: NEUROPATHY PERIPHERAL
     Dosage: 30 MG, ONE TABLET TWICE DAILY
     Route: 065

REACTIONS (3)
  - Drug tolerance [Unknown]
  - Drug effect variable [Unknown]
  - Suspected counterfeit product [Unknown]

NARRATIVE: CASE EVENT DATE: 2017
